FAERS Safety Report 10057155 (Version 4)
Quarter: 2015Q1

REPORT INFORMATION
  Report Type: Report from Study
  Country: US (occurrence: US)
  Receive Date: 20140403
  Receipt Date: 20150225
  Transmission Date: 20150720
  Serious: Yes (Congenital Anomaly, Other)
  Sender: FDA-Public Use
  Company Number: US-TEVA-472940USA

PATIENT
  Age: 0 Day
  Sex: Male

DRUGS (5)
  1. PRENATAL VITAMINS [Concomitant]
     Active Substance: VITAMINS
     Dosage: 1 TABLET DAILY;
  2. FERROUS SULFATE [Concomitant]
     Active Substance: FERROUS SULFATE\FERROUS SULFATE, DRIED
     Dosage: 325 MILLIGRAM DAILY;
     Dates: start: 20131108, end: 20131208
  3. NUVIGIL [Suspect]
     Active Substance: ARMODAFINIL
  4. PROAIR HFA [Concomitant]
     Active Substance: ALBUTEROL SULFATE
     Indication: ASTHMA
  5. VITAMIN C [Concomitant]
     Active Substance: ASCORBIC ACID

REACTIONS (4)
  - Sinus disorder [Unknown]
  - Nasal congestion [Unknown]
  - Weight gain poor [Unknown]
  - Congenital umbilical hernia [Unknown]

NARRATIVE: CASE EVENT DATE: 20140121
